FAERS Safety Report 8037879-0 (Version None)
Quarter: 2012Q1

REPORT INFORMATION
  Report Type: 
  Country: None (occurrence: None)
  Receive Date: 20120111
  Receipt Date: 20111101
  Transmission Date: 20120608
  Serious: Yes (Other)
  Sender: FDA-Public Use
  Company Number: US-TEVA-2011005616

PATIENT
  Sex: Female
  Weight: 81.266 kg

DRUGS (3)
  1. SUBOXONE [Concomitant]
  2. ATENOLOL [Concomitant]
  3. NUVIGIL [Suspect]
     Dosage: 150 MILLIGRAM;
     Route: 048

REACTIONS (1)
  - RASH GENERALISED [None]
